FAERS Safety Report 18564734 (Version 1)
Quarter: 2020Q4

REPORT INFORMATION
  Report Type: Report from Study
  Country: None (occurrence: IT)
  Receive Date: 20201201
  Receipt Date: 20201201
  Transmission Date: 20210114
  Serious: Yes (Death)
  Sender: FDA-Public Use
  Company Number: IT-ABBVIE-20K-083-3670630-00

PATIENT
  Age: 83 Year
  Sex: Male

DRUGS (2)
  1. DUODOPA [Suspect]
     Active Substance: CARBIDOPA\LEVODOPA
  2. DUODOPA [Suspect]
     Active Substance: CARBIDOPA\LEVODOPA
     Indication: PARKINSON^S DISEASE
     Dosage: DAILY DOSE: 1414MG; PUMP SETTING: MD: 3,2+3CR: 4,2(14H)ED: 3,3, 20 MG/ML 5 MG/ML
     Route: 050
     Dates: start: 20100726, end: 20201012

REACTIONS (2)
  - COVID-19 [Fatal]
  - Disease complication [Fatal]

NARRATIVE: CASE EVENT DATE: 2020
